FAERS Safety Report 4890717-7 (Version None)
Quarter: 2006Q1

REPORT INFORMATION
  Report Type: 
  Country: None (occurrence: None)
  Receive Date: 20060125
  Receipt Date: 20030425
  Transmission Date: 20060701
  Serious: Yes (Other)
  Sender: FDA-Public Use
  Company Number: US-BRISTOL-MYERS SQUIBB COMPANY-12258794

PATIENT
  Age: 25 Year
  Sex: Female

DRUGS (4)
  1. STADOL [Suspect]
     Indication: SICKLE CELL ANAEMIA
     Route: 045
     Dates: start: 19980120, end: 20010501
  2. DEMEROL [Concomitant]
  3. PROMETHAZINE [Concomitant]
  4. ACETAMINOPHEN W/ PROPOXYPHENE HCL [Concomitant]

REACTIONS (1)
  - DEPENDENCE [None]
